FAERS Safety Report 8178019-7 (Version None)
Quarter: 2012Q1

REPORT INFORMATION
  Report Type: 
  Country: None (occurrence: None)
  Receive Date: 20120301
  Receipt Date: 20120223
  Transmission Date: 20120608
  Serious: Yes (Hospitalization, Disabling, Other)
  Sender: FDA-Public Use
  Company Number: US-AMGEN-USASP2012000409

PATIENT
  Age: 54 Year
  Sex: Male
  Weight: 119.27 kg

DRUGS (18)
  1. METOPROLOL TARTRATE [Concomitant]
     Indication: ESSENTIAL HYPERTENSION
     Dosage: 50 MG, BID
     Route: 048
  2. METHOTREXATE [Concomitant]
     Indication: RHEUMATOID ARTHRITIS
     Dosage: 15 MG, QWK
     Route: 048
  3. LEFLUNOMIDE [Concomitant]
     Indication: RHEUMATOID ARTHRITIS
     Dosage: 20 MG, QD
     Route: 048
  4. PNEUMOVAX 23 [Concomitant]
     Dosage: 0.5 ML, UNK
     Dates: start: 20090830
  5. GLIMEPIRIDE [Concomitant]
     Indication: TYPE 2 DIABETES MELLITUS
     Dosage: 2 MG, QD
     Route: 048
  6. SUCRALFATE [Concomitant]
     Dosage: 1000 MG, TID
     Route: 048
  7. ENBREL [Suspect]
     Indication: RHEUMATOID ARTHRITIS
     Dosage: UNK
  8. PREDNISONE TAB [Concomitant]
     Dosage: 5 MG, QD
     Route: 048
  9. HYDROCODONE BITARTRATE AND ACETAMINOPHEN [Concomitant]
     Indication: PAIN
     Dosage: UNK UNK, PRN
     Route: 048
  10. JANUMET [Concomitant]
     Indication: TYPE 2 DIABETES MELLITUS
     Dosage: 1000 MG, QD
  11. LANTUS [Concomitant]
     Indication: TYPE 2 DIABETES MELLITUS
     Dosage: 20 IU, QD
     Route: 058
  12. LOVASTATIN [Concomitant]
     Dosage: 20 MG, QD
     Route: 048
  13. OMEPRAZOLE [Concomitant]
     Dosage: 20 MG, QD
     Route: 048
  14. GEMFIBROZIL [Concomitant]
     Dosage: 600 MG, BID
  15. FOLIC ACID [Concomitant]
     Dosage: 1 MG, QD
     Route: 048
  16. LEVITRA [Concomitant]
     Dosage: 20 MG, QD
     Route: 048
  17. ARAVA [Concomitant]
     Dosage: 20 MG, UNK
     Route: 048
  18. LISINOPRIL AND HYDROCHLOROTHIAZIDE [Concomitant]
     Indication: ESSENTIAL HYPERTENSION
     Dosage: UNK UNK, QD

REACTIONS (19)
  - GASTROINTESTINAL INFECTION [None]
  - CONSTIPATION [None]
  - VIRAL INFECTION [None]
  - PERICARDIAL EFFUSION [None]
  - IMPAIRED WORK ABILITY [None]
  - FATIGUE [None]
  - ATRIAL FIBRILLATION [None]
  - ANXIETY [None]
  - PAIN [None]
  - SYNCOPE [None]
  - DIABETES MELLITUS INADEQUATE CONTROL [None]
  - ARTHRALGIA [None]
  - PAIN IN EXTREMITY [None]
  - ASTHENIA [None]
  - BLOOD GLUCOSE ABNORMAL [None]
  - BRONCHITIS [None]
  - ORGANIC ERECTILE DYSFUNCTION [None]
  - RASH [None]
  - PNEUMONIA [None]
